FAERS Safety Report 5162475-2 (Version None)
Quarter: 2006Q4

REPORT INFORMATION
  Report Type: 
  Country: None (occurrence: None)
  Receive Date: 20061129
  Receipt Date: 20061129
  Transmission Date: 20070319
  Serious: Yes (Hospitalization)
  Sender: FDA-Public Use
  Company Number: None

PATIENT
  Age: 63 Year
  Sex: Female
  Weight: 67.1324 kg

DRUGS (4)
  1. FLUDARABINE [Suspect]
     Indication: ACUTE MYELOID LEUKAEMIA
     Dosage: 24 MG OVER 30 MIN PER DAY X 5D IV
     Route: 042
     Dates: start: 20060914, end: 20060918
  2. CARBOPLATIN [Suspect]
     Indication: ACUTE MYELOID LEUKAEMIA
     Dosage: 230 MG OVER 24 HRS X 5 DOSES IV
     Route: 042
     Dates: start: 20060914, end: 20060919
  3. TOPOTECAN 0.8MG/M2/2H [Suspect]
     Indication: ACUTE MYELOID LEUKAEMIA
     Dosage: 1.4 MG OVER 24HRS X 3 DOSES IV
     Route: 042
     Dates: start: 20060919, end: 20060922
  4. THALIDOMIDE [Suspect]
     Indication: ACUTE MYELOID LEUKAEMIA
     Dosage: 200 NEG QD PO
     Route: 048
     Dates: start: 20060907, end: 20060915

REACTIONS (5)
  - APLASIA [None]
  - BLOOD ALBUMIN DECREASED [None]
  - HYPOGLYCAEMIA [None]
  - PLATELET COUNT DECREASED [None]
  - WHITE BLOOD CELL COUNT DECREASED [None]
